FAERS Safety Report 5136890-7 (Version None)
Quarter: 2006Q4

REPORT INFORMATION
  Report Type: 
  Country: None (occurrence: None)
  Receive Date: 20061023
  Receipt Date: 20061010
  Transmission Date: 20070319
  Serious: Yes (Death, Life-Threatening)
  Sender: FDA-Public Use
  Company Number: 2006124367

PATIENT
  Age: 80 Year
  Sex: Female

DRUGS (1)
  1. UNASYN [Suspect]
     Indication: ANTIBIOTIC PROPHYLAXIS
     Dosage: (250 MG, ONCE), INTRAVENOUS
     Route: 042
     Dates: start: 20060913, end: 20060913

REACTIONS (6)
  - ANAPHYLACTIC SHOCK [None]
  - CARDIAC ARREST [None]
  - COMA [None]
  - INTRA-ABDOMINAL HAEMORRHAGE [None]
  - LACTIC ACIDOSIS [None]
  - VASCULAR RUPTURE [None]
